FAERS Safety Report 7706019-7 (Version None)
Quarter: 2011Q3

REPORT INFORMATION
  Report Type: 
  Country: None (occurrence: None)
  Receive Date: 20110818
  Receipt Date: 20110804
  Transmission Date: 20111222
  Serious: Yes (Life-Threatening, Hospitalization, Other)
  Sender: FDA-Public Use
  Company Number: 2006EN000105

PATIENT
  Age: 13 Month
  Sex: Female

DRUGS (12)
  1. ACYCLOVIR [Concomitant]
  2. AMPICILLIN SODIUM [Concomitant]
  3. ADAGEN [Suspect]
     Indication: COMBINED IMMUNODEFICIENCY
     Dosage: 20 IU/KG; QW; IM
     Route: 030
     Dates: start: 20050622, end: 20060206
  4. ADAGEN [Suspect]
     Indication: COMBINED IMMUNODEFICIENCY
     Dosage: 20 IU/KG; QW; IM
     Route: 030
     Dates: start: 20060705
  5. ADAGEN [Suspect]
     Indication: COMBINED IMMUNODEFICIENCY
     Dosage: 20 IU/KG; QW; IM
     Route: 030
     Dates: start: 20030618, end: 20050510
  6. COTRIM [Concomitant]
  7. IMIPENEM [Concomitant]
  8. CORTICOSTEROIDS [Concomitant]
  9. ITRACONAZOLE [Concomitant]
  10. IMMUNOGLOBULINS [Concomitant]
  11. VANCOMYCIN HCL [Concomitant]
  12. CEFTAZIDIME [Concomitant]

REACTIONS (38)
  - NO THERAPEUTIC RESPONSE [None]
  - URTICARIA [None]
  - PYREXIA [None]
  - STAPHYLOCOCCUS TEST POSITIVE [None]
  - PLEURAL EFFUSION [None]
  - HEPATOMEGALY [None]
  - ORAL CANDIDIASIS [None]
  - ESCHERICHIA URINARY TRACT INFECTION [None]
  - INTERSTITIAL LUNG DISEASE [None]
  - HISTIOCYTOSIS HAEMATOPHAGIC [None]
  - DEVELOPMENTAL DELAY [None]
  - MORAXELLA INFECTION [None]
  - HEPATIC ENZYME INCREASED [None]
  - RENAL VEIN THROMBOSIS [None]
  - OTITIS MEDIA ACUTE [None]
  - PNEUMOTHORAX TRAUMATIC [None]
  - HYPERTENSION [None]
  - NEUTROPENIA [None]
  - URINARY TRACT INFECTION [None]
  - PSEUDOMONAS INFECTION [None]
  - PSYCHOMOTOR SKILLS IMPAIRED [None]
  - BRONCHITIS [None]
  - DEVICE RELATED INFECTION [None]
  - RASH MACULO-PAPULAR [None]
  - THROMBOSIS IN DEVICE [None]
  - CEREBRAL HAEMATOMA [None]
  - MUSCLE HYPERTROPHY [None]
  - CEREBRAL SMALL VESSEL ISCHAEMIC DISEASE [None]
  - MORGANELLA INFECTION [None]
  - ANAEMIA HAEMOLYTIC AUTOIMMUNE [None]
  - MUSCLE ATROPHY [None]
  - AUTOIMMUNE THROMBOCYTOPENIA [None]
  - LYMPHOPENIA [None]
  - HYPERTRICHOSIS [None]
  - UPPER RESPIRATORY TRACT INFECTION BACTERIAL [None]
  - ESCHERICHIA TEST POSITIVE [None]
  - HAEMOPHILUS TEST POSITIVE [None]
  - IRON DEFICIENCY ANAEMIA [None]
